FAERS Safety Report 5017305-6 (Version None)
Quarter: 2006Q2

REPORT INFORMATION
  Report Type: 
  Country: None (occurrence: None)
  Receive Date: 20060602
  Receipt Date: 20060524
  Transmission Date: 20061013
  Serious: Yes (Death, Other)
  Sender: FDA-Public Use
  Company Number: GB-ABBOTT-06P-167-0334409-00

PATIENT
  Age: 1 Day
  Sex: Female

DRUGS (1)
  1. EPILIM TABLETS [Suspect]
     Indication: DRUG EXPOSURE DURING PREGNANCY

REACTIONS (2)
  - DEATH [None]
  - PREMATURE LABOUR [None]
